FAERS Safety Report 8066272-X (Version None)
Quarter: 2012Q1

REPORT INFORMATION
  Report Type: 
  Country: None (occurrence: None)
  Receive Date: 20120124
  Receipt Date: 20120117
  Transmission Date: 20120608
  Serious: Yes (Hospitalization)
  Sender: FDA-Public Use
  Company Number: JP-ROCHE-1031160

PATIENT
  Age: 74 Year
  Sex: Female

DRUGS (2)
  1. COPEGUS [Suspect]
     Indication: HEPATITIS C
     Dosage: DOSAGE IS UNCERTAIN.
     Route: 048
     Dates: start: 20110701
  2. PEGASYS [Suspect]
     Indication: HEPATITIS C
     Dosage: DOSAGE IS UNCERTAIN.
     Route: 058
     Dates: start: 20070101, end: 20111231

REACTIONS (3)
  - CARDIOMYOPATHY [None]
  - CARDIAC FAILURE [None]
  - RENAL IMPAIRMENT [None]
